FAERS Safety Report 9821363 (Version 1)
Quarter: 2014Q1

REPORT INFORMATION
  Report Type: Spontaneous
  Country: US (occurrence: None)
  Receive Date: 20140115
  Receipt Date: 20140115
  Transmission Date: 20141002
  Serious: Yes (Disabling, Other)
  Sender: FDA-Public Use
  Company Number: None

PATIENT
  Age: 39 Year
  Sex: Female
  Weight: 82.1 kg

DRUGS (2)
  1. MULTIHANCE [Suspect]
     Indication: BACK DISORDER
  2. MULTIHANCE [Suspect]
     Indication: MALAISE

REACTIONS (3)
  - Nervous system disorder [None]
  - Autoimmune disorder [None]
  - Cachexia [None]
